FAERS Safety Report 9430792 (Version 1)
Quarter: 2013Q3

REPORT INFORMATION
  Report Type: Spontaneous
  Country: US (occurrence: US)
  Receive Date: 20130730
  Receipt Date: 20130730
  Transmission Date: 20140515
  Serious: No
  Sender: FDA-Public Use
  Company Number: US-ABBOTT-13P-163-1111689-00

PATIENT
  Age: 64 Year
  Sex: Male

DRUGS (7)
  1. NIASPAN [Suspect]
     Indication: BLOOD CHOLESTEROL INCREASED
     Dates: start: 201109, end: 201110
  2. NIASPAN [Suspect]
     Dates: start: 201111, end: 20130407
  3. ATORVASTATIN [Concomitant]
     Indication: BLOOD CHOLESTEROL INCREASED
  4. ASPIRIN [Concomitant]
     Indication: CARDIAC DISORDER
  5. ASPIRIN [Concomitant]
     Indication: PROPHYLAXIS
  6. ASPIRIN [Concomitant]
     Indication: PROPHYLAXIS
     Dates: start: 201109, end: 20130407
  7. ASPIRIN [Concomitant]
     Indication: DRUG THERAPY

REACTIONS (5)
  - Anaemia [Not Recovered/Not Resolved]
  - Dyspnoea [Not Recovered/Not Resolved]
  - Neuralgia [Recovered/Resolved]
  - Memory impairment [Not Recovered/Not Resolved]
  - Haematocrit decreased [Not Recovered/Not Resolved]
